FAERS Safety Report 15758766 (Version 1)
Quarter: 2018Q4

REPORT INFORMATION
  Report Type: Spontaneous
  Country: DE (occurrence: DE)
  Receive Date: 20181225
  Receipt Date: 20181225
  Transmission Date: 20190205
  Serious: Yes (Other)
  Sender: FDA-Public Use
  Company Number: DE-009507513-1812DEU008817

PATIENT
  Age: 8 Year
  Sex: Male

DRUGS (2)
  1. VALPROAT [Concomitant]
     Active Substance: VALPROATE SODIUM
     Dosage: IN THE MORNING
  2. TEMODAL [Suspect]
     Active Substance: TEMOZOLOMIDE
     Indication: BRAIN STEM GLIOMA
     Dosage: 450 MG (6 CAPSULA), IN THE EVENING
     Dates: start: 201811, end: 201812

REACTIONS (2)
  - Vomiting [Unknown]
  - Haematemesis [Unknown]

NARRATIVE: CASE EVENT DATE: 2018
